FAERS Safety Report 24954103 (Version 1)
Quarter: 2025Q1

REPORT INFORMATION
  Report Type: Spontaneous
  Country: FR (occurrence: FR)
  Receive Date: 20250211
  Receipt Date: 20250211
  Transmission Date: 20250409
  Serious: Yes (Other)
  Sender: RANBAXY
  Company Number: FR-SUN PHARMACEUTICAL INDUSTRIES LTD-2025RR-493603

PATIENT
  Age: 38 Year
  Sex: Female
  Weight: 88 kg

DRUGS (4)
  1. ESOMEPRAZOLE [Suspect]
     Active Substance: ESOMEPRAZOLE
     Indication: Helicobacter infection
     Dosage: 20 MILLIGRAM, BID
     Route: 048
     Dates: start: 20240826, end: 20240827
  2. AMOXICILLIN [Suspect]
     Active Substance: AMOXICILLIN
     Indication: Helicobacter infection
     Dosage: 1 GRAM, BID
     Route: 048
     Dates: end: 20240827
  3. PYLERA [Suspect]
     Active Substance: BISMUTH SUBCITRATE POTASSIUM\METRONIDAZOLE\TETRACYCLINE HYDROCHLORIDE
     Indication: Helicobacter infection
     Dosage: 1 DOSAGE FORM, QID
     Route: 048
     Dates: start: 20240826, end: 20240826
  4. METRONIDAZOLE [Suspect]
     Active Substance: METRONIDAZOLE
     Indication: Helicobacter infection
     Dosage: 500 MILLIGRAM, BID
     Route: 048
     Dates: end: 20240827

REACTIONS (3)
  - Fixed eruption [Recovered/Resolved]
  - Dyspnoea [Recovered/Resolved]
  - Lip oedema [Recovered/Resolved]

NARRATIVE: CASE EVENT DATE: 20240827
